FAERS Safety Report 7319880-5 (Version None)
Quarter: 2011Q1

REPORT INFORMATION
  Report Type: 
  Country: None (occurrence: None)
  Receive Date: 20110228
  Receipt Date: 20101105
  Transmission Date: 20110831
  Serious: No
  Sender: FDA-Public Use
  Company Number: A0891445A

PATIENT
  Age: 48 Year
  Sex: Female

DRUGS (1)
  1. LAMICTAL [Suspect]
     Route: 065
     Dates: start: 20101025, end: 20101104

REACTIONS (2)
  - DRUG INEFFECTIVE [None]
  - DRUG INTOLERANCE [None]
